FAERS Safety Report 20610330 (Version 1)
Quarter: 2022Q1

REPORT INFORMATION
  Report Type: Spontaneous
  Country: US (occurrence: US)
  Receive Date: 20220318
  Receipt Date: 20220318
  Transmission Date: 20220423
  Serious: No
  Sender: FDA-Public Use
  Company Number: US-UCBSA-2021050804

PATIENT
  Age: 27 Year
  Sex: Female

DRUGS (3)
  1. BRIVARACETAM [Suspect]
     Active Substance: BRIVARACETAM
     Indication: Seizure
     Dosage: 50 MILLIGRAM, 2X/DAY (BID)
     Dates: start: 2021
  2. BRIVARACETAM [Suspect]
     Active Substance: BRIVARACETAM
     Indication: Off label use
  3. OXCARB [Concomitant]
     Indication: Product used for unknown indication
     Dosage: UNK

REACTIONS (2)
  - Maternal exposure during pregnancy [Unknown]
  - Off label use [Unknown]
